FAERS Safety Report 8515792-X (Version None)
Quarter: 2012Q3

REPORT INFORMATION
  Report Type: 
  Country: None (occurrence: None)
  Receive Date: 20120717
  Receipt Date: 20120621
  Transmission Date: 20120928
  Serious: Yes (Hospitalization)
  Sender: FDA-Public Use
  Company Number: US-009507513-2010SP039400

PATIENT

DRUGS (26)
  1. RANITIDINE [Concomitant]
     Indication: GASTROOESOPHAGEAL REFLUX DISEASE
     Dosage: 300 MG, QD
     Dates: start: 20091013
  2. FONDAPARINUX SODIUM [Concomitant]
     Indication: THROMBOSIS PROPHYLAXIS
     Dosage: 2.5 MG, QD
     Dates: start: 20100630
  3. DIPHENHYDRAMINE HCL [Concomitant]
     Indication: NAUSEA
     Dosage: 25 MG, QID
     Dates: start: 20100629, end: 20100701
  4. OXYCODONE HCL [Concomitant]
     Indication: PAIN
     Dosage: 10 MG, Q4H
     Route: 042
     Dates: start: 20100630, end: 20100701
  5. DOCUSATE SODIUM [Concomitant]
     Indication: CONSTIPATION
     Dosage: 100 MG, BID
     Dates: start: 20100629
  6. GABAPENTIN [Concomitant]
     Indication: CONVULSION
     Dosage: 300 MG, TID
     Dates: start: 20091029
  7. IBUPROFEN [Concomitant]
     Indication: PYREXIA
     Dosage: 600 MG, QID
     Dates: start: 20100629
  8. INVESTIGATIONAL DRUG (UNSPECIFIED) [Suspect]
     Indication: OVARIAN CANCER
     Dosage: 40 MG, QD
     Route: 048
     Dates: start: 20100624, end: 20100629
  9. CYCLOBENZAPRINE HCL [Concomitant]
     Indication: PAIN
     Dosage: 10 MG, TID
     Dates: start: 20100315
  10. VITAMINS (UNSPECIFIED) [Concomitant]
     Indication: GENERAL PHYSICAL CONDITION
     Dosage: 5 ML, QD
     Route: 048
     Dates: start: 20100629
  11. ONDANSETRON [Concomitant]
     Indication: NAUSEA
     Dosage: 4 MG, TID
     Dates: start: 20100629, end: 20100701
  12. ONDANSETRON [Concomitant]
     Dosage: 8 MG, TID
     Dates: start: 20100701
  13. SODIUM CHLORIDE [Concomitant]
     Indication: DEHYDRATION
     Dosage: CONTINUOUS
     Dates: start: 20100629, end: 20100701
  14. ACETAMINOPHEN/HYDROCODONE BITARTRATE [Concomitant]
     Indication: PAIN
     Dosage: 5/500 MG (1 IN 4 HR)
     Dates: start: 20080315
  15. LORAZEPAM [Concomitant]
     Indication: NAUSEA
     Dosage: 0.5 MG, TID
     Dates: start: 20100421
  16. PROCHLORPERAZINE EDISYLATE [Concomitant]
     Indication: NAUSEA
     Dosage: 10 MG, TID
     Dates: start: 20090428
  17. MORPHINE SULFATE (AVINZA ER) [Concomitant]
     Indication: PAIN
     Dosage: 10 MG, QH
     Route: 042
     Dates: start: 20100629, end: 20100701
  18. TRAZODONE HYDROCHLORIDE [Concomitant]
     Indication: INSOMNIA
     Dosage: 50 MG, HS
     Route: 048
     Dates: start: 20100630, end: 20100701
  19. TYLOX [Concomitant]
     Indication: PAIN
     Dosage: 5/325 MG (4 IN 1 DAY)
     Dates: start: 20080331
  20. PROMETHAZINE [Concomitant]
     Indication: NAUSEA
     Dosage: Q4-6 HOURS
     Dates: start: 20100624
  21. ELECTROLYTES (UNSPECIFIED) (+) SODIUM LACTATE [Concomitant]
     Indication: DEHYDRATION
     Dosage: CONTINUOUS
     Dates: start: 20100629, end: 20100701
  22. TEMOZOLOMIDE [Suspect]
     Indication: OVARIAN CANCER
     Dosage: 245 MG, QD
     Route: 048
     Dates: start: 20100624, end: 20100628
  23. CIPROFLOXACIN [Concomitant]
     Indication: INFECTION PROPHYLAXIS
     Dosage: 400 MG, BID
     Route: 048
     Dates: start: 20100629, end: 20100701
  24. CIPROFLOXACIN [Concomitant]
     Indication: INFECTION PROPHYLAXIS
     Dosage: 750 MG, BID
     Dates: start: 20100701
  25. SULFAMETHOXAZOLE AND TRIMETHOPRIM [Concomitant]
     Indication: PROPHYLAXIS
     Dosage: DS (2 IN 1 D)
     Dates: start: 20100702, end: 20100704
  26. CIPROFLOXACIN [Concomitant]
     Dosage: UPDATE(14FEB2011)
     Route: 065
     Dates: start: 20100701, end: 20100702

REACTIONS (2)
  - DEHYDRATION [None]
  - THROMBOCYTOPENIA [None]
